FAERS Safety Report 9332868 (Version 1)
Quarter: 2013Q2

REPORT INFORMATION
  Report Type: Spontaneous
  Country: BR (occurrence: None)
  Receive Date: 20130603
  Receipt Date: 20130603
  Transmission Date: 20140414
  Serious: Yes (Other)
  Sender: FDA-Public Use
  Company Number: AUR-APL-2013-04435

PATIENT
  Sex: Male

DRUGS (2)
  1. PAROXETINE (PAROXETINE) [Suspect]
     Indication: PRODUCT USED FOR UNKNOWN INDICATION
     Dates: end: 20130508
  2. PRISTIQ (DESVENLAFAXINE SUCCINATE) [Suspect]
     Indication: OBSESSIVE-COMPULSIVE DISORDER
     Dosage: 1 D
     Dates: start: 20130424

REACTIONS (4)
  - Obsessive-compulsive disorder [None]
  - Condition aggravated [None]
  - Product solubility abnormal [None]
  - Medication residue present [None]
